FAERS Safety Report 7415981-1 (Version None)
Quarter: 2011Q2

REPORT INFORMATION
  Report Type: 
  Country: None (occurrence: None)
  Receive Date: 20110414
  Receipt Date: 20110317
  Transmission Date: 20111010
  Serious: No
  Sender: FDA-Public Use
  Company Number: US-B.I. PHARMACEUTICALS,INC./RIDGEFIELD-2011-BP-08528BP

PATIENT
  Sex: Female

DRUGS (9)
  1. PRADAXA [Suspect]
     Indication: ATRIAL FIBRILLATION
     Dosage: 150 MG
     Route: 048
     Dates: start: 20110314, end: 20110316
  2. PENTASA [Concomitant]
     Indication: CROHN'S DISEASE
     Dosage: 2000 MG
     Route: 048
  3. DIGOXIN [Concomitant]
     Route: 048
  4. PREDNISONE [Concomitant]
     Dosage: 7 MG
     Route: 048
  5. FUROSEMIDE [Concomitant]
     Indication: FLUID RETENTION
     Dosage: 40 MG
     Route: 048
  6. SPIRONOLACTONE [Concomitant]
     Route: 048
  7. AMIODARONE [Concomitant]
     Route: 048
  8. MERCAPTOPURINE [Concomitant]
     Route: 048
  9. SYNTHROID [Concomitant]
     Indication: HYPOTHYROIDISM
     Dosage: 100 MCG
     Route: 048

REACTIONS (2)
  - RECTAL HAEMORRHAGE [None]
  - ASTHENIA [None]
